FAERS Safety Report 6684433-9 (Version None)
Quarter: 2010Q2

REPORT INFORMATION
  Report Type: 
  Country: None (occurrence: None)
  Receive Date: 20100416
  Receipt Date: 20100416
  Transmission Date: 20101027
  Serious: Yes (Disabling)
  Sender: FDA-Public Use
  Company Number: PT-JNJFOC-20100304104

PATIENT
  Sex: Male
  Weight: 89 kg

DRUGS (4)
  1. INTELENCE [Suspect]
     Indication: HIV INFECTION
     Route: 048
  2. DARUNAVIR [Concomitant]
     Indication: HIV INFECTION
  3. RITONAVIR [Concomitant]
     Indication: HIV INFECTION
     Route: 048
  4. RALTEGRAVIR [Concomitant]
     Indication: HIV INFECTION
     Route: 048

REACTIONS (4)
  - CONJUNCTIVAL HYPERAEMIA [None]
  - DERMATITIS ALLERGIC [None]
  - RASH [None]
  - RASH MACULO-PAPULAR [None]
